FAERS Safety Report 10578935 (Version 3)
Quarter: 2017Q1

REPORT INFORMATION
  Report Type: Report from Study
  Country: US (occurrence: US)
  Receive Date: 20141112
  Receipt Date: 20170329
  Transmission Date: 20170428
  Serious: Yes (Hospitalization)
  Sender: FDA-Public Use
  Company Number: US-ARIAD-2014US004013

PATIENT

DRUGS (2)
  1. ICLUSIG [Suspect]
     Active Substance: PONATINIB
     Dosage: 15 MG, QD
     Route: 048
  2. ICLUSIG [Suspect]
     Active Substance: PONATINIB
     Indication: CHRONIC MYELOID LEUKAEMIA
     Dosage: 15 MG, QD
     Route: 048

REACTIONS (5)
  - Blood glucose increased [Recovered/Resolved]
  - Anorectal discomfort [Recovered/Resolved]
  - Abdominal pain upper [Recovered/Resolved]
  - Furuncle [Recovered/Resolved]
  - Hospitalisation [Unknown]
